FAERS Safety Report 4686419-2 (Version None)
Quarter: 2005Q2

REPORT INFORMATION
  Report Type: 
  Country: None (occurrence: None)
  Receive Date: 20050606
  Receipt Date: 20050526
  Transmission Date: 20051028
  Serious: Yes (Hospitalization)
  Sender: FDA-Public Use
  Company Number: 2005065471

PATIENT
  Age: 47 Year
  Sex: Female
  Weight: 52 kg

DRUGS (6)
  1. NORVASC [Suspect]
     Indication: HYPERTENSION
     Dosage: 2.5 MG (2.5 MG, QD), ORAL
     Route: 048
     Dates: start: 20050328
  2. NU LOTAN         (LOSARTAN POTASSIUM) [Concomitant]
     Indication: HYPERTENSION
     Dosage: 50 MG (50 MG, QD), ORAL
     Route: 048
     Dates: start: 20050412, end: 20050412
  3. VALSARTAN [Concomitant]
  4. ADALAT [Concomitant]
  5. LUDIOMIL [Concomitant]
  6. MUSCALM                (TOLPERISONE HYDROCHLORIDE) [Concomitant]

REACTIONS (6)
  - BRAIN OEDEMA [None]
  - MALAISE [None]
  - NAUSEA [None]
  - ORAL INTAKE REDUCED [None]
  - PAROSMIA [None]
  - REFUSAL OF TREATMENT BY PATIENT [None]
